FAERS Safety Report 18956442 (Version 1)
Quarter: 2021Q1

REPORT INFORMATION
  Report Type: Report from Study
  Country: None (occurrence: US)
  Receive Date: 20210302
  Receipt Date: 20210302
  Transmission Date: 20210420
  Serious: Yes (Death)
  Sender: FDA-Public Use
  Company Number: US-ABBVIE-21K-163-3795509-00

PATIENT
  Sex: Male

DRUGS (1)
  1. VENCLEXTA [Suspect]
     Active Substance: VENETOCLAX
     Indication: CHRONIC LYMPHOCYTIC LEUKAEMIA
     Dosage: TAKE 4 TABS BY MOUTH DAILY FOR 10 DAYS WITH FOOD. TAKE ON DAYS 1?10 OF EACH CHEMO CYCLE
     Route: 048
     Dates: start: 20201230

REACTIONS (1)
  - Death [Fatal]
